FAERS Safety Report 18099213 (Version 1)
Quarter: 2020Q3

REPORT INFORMATION
  Report Type: Report from Study
  Country: US (occurrence: US)
  Receive Date: 20200731
  Receipt Date: 20200731
  Transmission Date: 20201103
  Serious: No
  Sender: FDA-Public Use
  Company Number: US-SHIRE-US201946089

PATIENT

DRUGS (1)
  1. TEDUGLUTIDE [Suspect]
     Active Substance: TEDUGLUTIDE
     Indication: SHORT-BOWEL SYNDROME
     Dosage: UNK
     Route: 065
     Dates: start: 20180327

REACTIONS (7)
  - Pruritus [Not Recovered/Not Resolved]
  - Blood urine present [Recovered/Resolved]
  - Basal cell carcinoma [Recovered/Resolved]
  - Atrophy [Recovered/Resolved]
  - Anaesthesia [Recovered/Resolved]
  - Paraesthesia [Recovered/Resolved]
  - Hepatitis B antibody abnormal [Not Recovered/Not Resolved]

NARRATIVE: CASE EVENT DATE: 20190308
